FAERS Safety Report 6333337-X (Version None)
Quarter: 2009Q3

REPORT INFORMATION
  Report Type: 
  Country: None (occurrence: None)
  Receive Date: 20090828
  Receipt Date: 20081216
  Transmission Date: 20100115
  Serious: No
  Sender: FDA-Public Use
  Company Number: A0748695A

PATIENT
  Age: 83 Year
  Sex: Female

DRUGS (3)
  1. BECONASE [Suspect]
     Route: 045
     Dates: start: 20030101
  2. CLARITIN [Concomitant]
  3. SALINE [Concomitant]

REACTIONS (2)
  - BURNING SENSATION [None]
  - PRODUCT QUALITY ISSUE [None]
